FAERS Safety Report 5165467-2 (Version None)
Quarter: 2006Q4

REPORT INFORMATION
  Report Type: 
  Country: None (occurrence: None)
  Receive Date: 20061206
  Receipt Date: 20061017
  Transmission Date: 20070319
  Serious: Yes (Other)
  Sender: FDA-Public Use
  Company Number: PHHO2006GB17294

PATIENT

DRUGS (4)
  1. MINERALS NOS [Concomitant]
     Indication: PROPHYLAXIS
  2. CHEMOTHERAPEUTICS,OTHER [Concomitant]
  3. CORTICOSTEROIDS [Concomitant]
  4. ZOLEDRONIC ACID V SODIUM CLODRONATE [Suspect]
     Indication: MULTIPLE MYELOMA
     Dosage: 4MG
     Route: 042

REACTIONS (5)
  - BONE DISORDER [None]
  - DISCOMFORT [None]
  - EXCESSIVE GRANULATION TISSUE [None]
  - OSTEONECROSIS [None]
  - TOOTH EXTRACTION [None]
